FAERS Safety Report 13844935 (Version 2)
Quarter: 2017Q3

REPORT INFORMATION
  Report Type: Spontaneous
  Country: DE (occurrence: DE)
  Receive Date: 20170808
  Receipt Date: 20170910
  Transmission Date: 20171127
  Serious: Yes (Hospitalization, Other)
  Sender: FDA-Public Use
  Company Number: DE-AMGEN-DEUSP2017116458

PATIENT
  Age: 7 Year
  Sex: Male

DRUGS (1)
  1. ENBREL [Suspect]
     Active Substance: ETANERCEPT
     Indication: GENE MUTATION
     Dosage: 0.4 MG/KG, 2X/WEEK
     Route: 065
     Dates: start: 20170615, end: 20170724

REACTIONS (6)
  - Infection susceptibility increased [Unknown]
  - Inflammation [Unknown]
  - Product use in unapproved indication [Unknown]
  - Effusion [Unknown]
  - Immune system disorder [Unknown]
  - Joint effusion [Not Recovered/Not Resolved]

NARRATIVE: CASE EVENT DATE: 20170615
